FAERS Safety Report 5587924-7 (Version None)
Quarter: 2008Q1

REPORT INFORMATION
  Report Type: 
  Country: None (occurrence: None)
  Receive Date: 20080111
  Receipt Date: 20070119
  Transmission Date: 20080703
  Serious: No
  Sender: FDA-Public Use
  Company Number: US-KINGPHARMUSA00001-K200700057

PATIENT

DRUGS (3)
  1. CORGARD [Suspect]
     Indication: HYPERTENSION
     Dosage: 20 MG, TID
     Route: 048
     Dates: start: 20061101
  2. SYNTHROID [Concomitant]
     Indication: HORMONE REPLACEMENT THERAPY
     Dosage: .125 MG, QD
     Route: 048
     Dates: start: 19760101
  3. UNIVASC [Concomitant]
     Indication: HYPERTENSION
     Dosage: 7.5 MG, BID
     Route: 048

REACTIONS (1)
  - ABDOMINAL PAIN UPPER [None]
